FAERS Safety Report 6251685-9 (Version None)
Quarter: 2009Q2

REPORT INFORMATION
  Report Type: 
  Country: None (occurrence: None)
  Receive Date: 20090630
  Receipt Date: 20090623
  Transmission Date: 20091009
  Serious: Yes (Other)
  Sender: FDA-Public Use
  Company Number: US-AVENTIS-200915526US

PATIENT
  Sex: Male

DRUGS (5)
  1. LANTUS [Suspect]
     Route: 058
     Dates: start: 20050101
  2. OPTICLIK (INSULIN INJECTION PEN) [Suspect]
     Dosage: DOSE: UNK
  3. LISINOPRIL [Concomitant]
     Dosage: DOSE: 1 TAB
  4. CRESTOR [Concomitant]
     Dosage: DOSE: 1 TAB
  5. METFORMIN HCL [Concomitant]
     Dosage: DOSE: 3 TABLETS IN AM AND 2 TABLETES IN PM

REACTIONS (1)
  - EYE HAEMORRHAGE [None]
